FAERS Safety Report 10086897 (Version 1)
Quarter: 2014Q2

REPORT INFORMATION
  Report Type: Report from Study
  Country: CA (occurrence: CA)
  Receive Date: 20140418
  Receipt Date: 20140418
  Transmission Date: 20141212
  Serious: Yes (Other)
  Sender: FDA-Public Use
  Company Number: CA-JNJFOC-20140410680

PATIENT
  Age: 28 Year
  Sex: Female
  Weight: 65.2 kg

DRUGS (4)
  1. REMICADE [Suspect]
     Indication: CROHN^S DISEASE
     Dosage: 22ND INFUSION
     Route: 042
     Dates: start: 20140412
  2. REMICADE [Suspect]
     Indication: CROHN^S DISEASE
     Dosage: 21ST INFUSION
     Route: 042
     Dates: start: 20140215
  3. REMICADE [Suspect]
     Indication: CROHN^S DISEASE
     Route: 042
     Dates: start: 201102
  4. CLONAZEPAM [Concomitant]
     Indication: DEPRESSION
     Route: 065

REACTIONS (4)
  - Nausea [Not Recovered/Not Resolved]
  - Abdominal pain [Not Recovered/Not Resolved]
  - Diarrhoea [Not Recovered/Not Resolved]
  - Weight decreased [Not Recovered/Not Resolved]
